FAERS Safety Report 5500940-6 (Version None)
Quarter: 2007Q4

REPORT INFORMATION
  Report Type: 
  Country: None (occurrence: None)
  Receive Date: 20071029
  Receipt Date: 20071023
  Transmission Date: 20080405
  Serious: Yes (Death)
  Sender: FDA-Public Use
  Company Number: PHHO2006CN20417

PATIENT
  Age: 56 Year
  Sex: Female
  Weight: 42 kg

DRUGS (1)
  1. GLEEVEC [Suspect]
     Indication: GASTROINTESTINAL STROMAL TUMOUR
     Dosage: 400MG DAILY
     Route: 048
     Dates: start: 20051219

REACTIONS (2)
  - ANAEMIA [None]
  - GASTROINTESTINAL STROMAL TUMOUR [None]
